FAERS Safety Report 6010321-7 (Version None)
Quarter: 2008Q4

REPORT INFORMATION
  Report Type: 
  Country: None (occurrence: None)
  Receive Date: 20081218
  Receipt Date: 20080715
  Transmission Date: 20090506
  Serious: No
  Sender: FDA-Public Use
  Company Number: A0737705A

PATIENT
  Age: 47 Year
  Sex: Male

DRUGS (3)
  1. FLONASE [Suspect]
     Dosage: 1SPR SINGLE DOSE
     Route: 045
     Dates: start: 20070101, end: 20070101
  2. METFORMIN HCL [Concomitant]
  3. COREG [Concomitant]

REACTIONS (1)
  - EPISTAXIS [None]
